FAERS Safety Report 4935044-4 (Version None)
Quarter: 2006Q1

REPORT INFORMATION
  Report Type: 
  Country: None (occurrence: None)
  Receive Date: 20060302
  Receipt Date: 20060214
  Transmission Date: 20060701
  Serious: Yes (Hospitalization, Other)
  Sender: FDA-Public Use
  Company Number: US200602003050

PATIENT
  Age: 55 Year
  Sex: Female

DRUGS (6)
  1. HUMULIN L [Suspect]
     Indication: DIABETES MELLITUS
     Dates: start: 19830101
  2. HUMULIN R [Suspect]
     Indication: DIABETES MELLITUS
     Dates: start: 19900101
  3. HUMALOG [Suspect]
     Indication: DIABETES MELLITUS
     Dates: start: 20030101
  4. LANTUS [Concomitant]
  5. TENORMIN /NEZ/ (ATENOLOL) [Concomitant]
  6. LEVOTHROID [Concomitant]

REACTIONS (7)
  - ABDOMINAL DISTENSION [None]
  - BREAST CANCER FEMALE [None]
  - IMPAIRED GASTRIC EMPTYING [None]
  - MALAISE [None]
  - MUSCLE SPASMS [None]
  - SARCOIDOSIS [None]
  - SYSTEMIC LUPUS ERYTHEMATOSUS [None]
